FAERS Safety Report 6924881-2 (Version None)
Quarter: 2010Q3

REPORT INFORMATION
  Report Type: 
  Country: None (occurrence: None)
  Receive Date: 20100816
  Receipt Date: 20100805
  Transmission Date: 20110219
  Serious: Yes (Other)
  Sender: FDA-Public Use
  Company Number: JP-ASTRAZENECA-2010SE37425

PATIENT
  Age: 78 Year
  Sex: Female

DRUGS (9)
  1. SEROQUEL [Suspect]
     Indication: DELIRIUM
     Route: 048
     Dates: start: 20100722, end: 20100805
  2. SEROQUEL [Interacting]
     Indication: COGNITIVE DISORDER
     Route: 048
     Dates: start: 20100722, end: 20100805
  3. WARFARIN [Interacting]
     Route: 048
  4. GASTER [Concomitant]
  5. DIGOXIN [Concomitant]
     Route: 048
  6. VASOLAN [Concomitant]
     Route: 048
  7. SENNOSIDE [Concomitant]
     Route: 048
  8. MAGLAX [Concomitant]
     Route: 048
  9. MICONAZOLE NITRATE [Concomitant]
     Dates: start: 20100723, end: 20100730

REACTIONS (2)
  - DRUG INTERACTION [None]
  - INTERNATIONAL NORMALISED RATIO INCREASED [None]
